FAERS Safety Report 20330316 (Version 1)
Quarter: 2022Q1

REPORT INFORMATION
  Report Type: Spontaneous
  Country: US (occurrence: US)
  Receive Date: 20220113
  Receipt Date: 20220113
  Transmission Date: 20220423
  Serious: Yes (Other)
  Sender: FDA-Public Use
  Company Number: US-Shilpa Medicare Limited-SML-US-2022-00006

PATIENT
  Age: 80 Year
  Sex: Male

DRUGS (5)
  1. DOCETAXEL [Suspect]
     Active Substance: DOCETAXEL
     Indication: Primary mediastinal large B-cell lymphoma
     Route: 065
  2. SIPULEUCEL-T [Suspect]
     Active Substance: SIPULEUCEL-T
     Indication: Primary mediastinal large B-cell lymphoma
     Route: 065
  3. GOSERELIN [Suspect]
     Active Substance: GOSERELIN
     Indication: Primary mediastinal large B-cell lymphoma
     Route: 065
  4. ENZALUTAMIDE [Suspect]
     Active Substance: ENZALUTAMIDE
     Indication: Primary mediastinal large B-cell lymphoma
     Route: 065
  5. ABIRATERONE [Suspect]
     Active Substance: ABIRATERONE
     Indication: Primary mediastinal large B-cell lymphoma
     Route: 065

REACTIONS (2)
  - Disease progression [Recovering/Resolving]
  - Treatment failure [Unknown]
